FAERS Safety Report 25797798 (Version 2)
Quarter: 2025Q4

REPORT INFORMATION
  Report Type: Report from Study
  Country: US (occurrence: US)
  Receive Date: 20250912
  Receipt Date: 20251118
  Transmission Date: 20260117
  Serious: No
  Sender: TAIHO ONCOLOGY INC
  Company Number: US-TAIHOP-2025-009739

PATIENT
  Sex: Female

DRUGS (1)
  1. INQOVI [Suspect]
     Active Substance: CEDAZURIDINE\DECITABINE
     Indication: Myelodysplastic syndrome
     Dosage: 135MG (DECITABINE 35 MG AND CEDAZURIDINE 100 MG) ON DAYS 1-5 OF EACH 28 DAYS.?CYCLE UNKNOWN
     Route: 048

REACTIONS (4)
  - White blood cell count decreased [Unknown]
  - Product size issue [Unknown]
  - Full blood count decreased [Unknown]
  - Product administration error [Unknown]
